FAERS Safety Report 5794183-9 (Version None)
Quarter: 2008Q2

REPORT INFORMATION
  Report Type: 
  Country: None (occurrence: None)
  Receive Date: 20080625
  Receipt Date: 20080617
  Transmission Date: 20081010
  Serious: Yes (Other)
  Sender: FDA-Public Use
  Company Number: 2008016116

PATIENT

DRUGS (1)
  1. ZYRTEC [Suspect]
     Dosage: UNSPECIFIED; ORAL
     Route: 048

REACTIONS (1)
  - HOMICIDAL IDEATION [None]
